FAERS Safety Report 4615933-0 (Version None)
Quarter: 2005Q1

REPORT INFORMATION
  Report Type: 
  Country: None (occurrence: None)
  Receive Date: 20050318
  Receipt Date: 20050308
  Transmission Date: 20050727
  Serious: Yes (Hospitalization)
  Sender: FDA-Public Use
  Company Number: 2005042014

PATIENT
  Age: 33 Year
  Sex: Female

DRUGS (4)
  1. CEFOPODOXIME PROXETIL                  (CEFPODOXIME PROXETIL) [Suspect]
     Indication: SINUSITIS
     Dosage: ORAL
     Route: 048
     Dates: start: 20041222, end: 20041225
  2. BETAMETHASONE [Suspect]
     Indication: SINUSITIS
     Dates: start: 20041222, end: 20041225
  3. ACETAMINOPHEN [Suspect]
     Indication: SINUSITIS
     Dosage: ORAL
     Route: 048
     Dates: start: 20041222, end: 20051225
  4. BICLOTYMOL (BICLOTYMOL [Suspect]
     Indication: SINUSITIS
     Dosage: OTHER
     Dates: start: 20041222, end: 20041225

REACTIONS (6)
  - BURNING SENSATION [None]
  - CHEILITIS [None]
  - ERYTHEMA MULTIFORME [None]
  - GLOSSITIS [None]
  - LEUKOCYTOSIS [None]
  - NEUTROPHIL COUNT DECREASED [None]
